FAERS Safety Report 20022389 (Version 1)
Quarter: 2021Q4

REPORT INFORMATION
  Report Type: Spontaneous
  Country: IT (occurrence: IT)
  Receive Date: 20211102
  Receipt Date: 20211102
  Transmission Date: 20220303
  Serious: Yes (Hospitalization)
  Sender: FDA-Public Use
  Company Number: None

PATIENT
  Age: 67 Year
  Sex: Male
  Weight: 70 kg

DRUGS (1)
  1. IBUPROFEN [Suspect]
     Active Substance: IBUPROFEN
     Indication: Back pain
     Dosage: ; AS REQUIRED
     Route: 048
     Dates: start: 20210728, end: 20210730

REACTIONS (1)
  - Dermatitis bullous [Not Recovered/Not Resolved]

NARRATIVE: CASE EVENT DATE: 20210730
